FAERS Safety Report 23526668 (Version 3)
Quarter: 2024Q2

REPORT INFORMATION
  Report Type: Spontaneous
  Country: US (occurrence: US)
  Receive Date: 20240215
  Receipt Date: 20240403
  Transmission Date: 20240716
  Serious: No
  Sender: FDA-Public Use
  Company Number: US-PFIZER INC-202400037272

PATIENT
  Age: 65 Year
  Sex: Female

DRUGS (2)
  1. ESTRING [Suspect]
     Active Substance: ESTRADIOL
     Indication: Atrophic vulvovaginitis
     Dosage: UNK (7.5MCG DELIVERY PER DAY)
     Route: 067
     Dates: start: 20231213, end: 20240113
  2. ESTRING [Suspect]
     Active Substance: ESTRADIOL
     Dosage: UNK (7.5MCG DELIVERY PER DAY)
     Route: 067
     Dates: start: 2024, end: 202402

REACTIONS (1)
  - Vulvovaginal mycotic infection [Not Recovered/Not Resolved]

NARRATIVE: CASE EVENT DATE: 20240108
